FAERS Safety Report 7514997-4 (Version None)
Quarter: 2011Q2

REPORT INFORMATION
  Report Type: 
  Country: None (occurrence: None)
  Receive Date: 20110425
  Receipt Date: 20100624
  Transmission Date: 20111010
  Serious: Yes (Other)
  Sender: FDA-Public Use
  Company Number: MC201000199

PATIENT
  Sex: Female

DRUGS (1)
  1. ANGIOMAX [Suspect]
     Indication: PERCUTANEOUS CORONARY INTERVENTION
     Dosage: 0.75 MG/KG, BOLUS, INTRAVENOUS, 1.75 MG/KG, HR, INTRAVENOUS
     Route: 042

REACTIONS (6)
  - RETROPERITONEAL HAEMATOMA [None]
  - HYPERTENSION [None]
  - HAEMORRHAGE [None]
  - GROIN PAIN [None]
  - BRADYCARDIA [None]
  - BLOOD PRESSURE SYSTOLIC DECREASED [None]
